FAERS Safety Report 9521683 (Version 1)
Quarter: 2013Q1

REPORT INFORMATION
  Report Type: Spontaneous
  Country: US (occurrence: None)
  Receive Date: 20130305
  Receipt Date: 20130305
  Transmission Date: 20140127
  Serious: Yes (Hospitalization)
  Sender: FDA-Public Use
  Company Number: 163-21880-12072960

PATIENT
  Age: 63 Year
  Sex: Female

DRUGS (7)
  1. REVLIMID [Suspect]
     Indication: PLASMA CELL MYELOMA
     Route: 048
     Dates: start: 201204, end: 20120726
  2. DEXAMETHASONE (DEXAMETHASONE) [Concomitant]
  3. ASA (ACETYLSALICYLIC ACID) [Concomitant]
  4. EFFEXOR XL (VENLAFAXINE HYDROCHLORIDE) [Concomitant]
  5. LANTUS INSULIN (INSULIN GLARGINE) [Concomitant]
  6. LORAZEPAM (LORAZEPAM) [Concomitant]
  7. LEVOTHYROXINE (LEVOTHYROXINE) [Concomitant]

REACTIONS (1)
  - Deep vein thrombosis [None]
